FAERS Safety Report 8631306 (Version 3)
Quarter: 2013Q1

REPORT INFORMATION
  Report Type: Report from Study
  Country: NL (occurrence: NL)
  Receive Date: 20120622
  Receipt Date: 20130226
  Transmission Date: 20140127
  Serious: Yes (Life-Threatening)
  Sender: FDA-Public Use
  Company Number: NL-AMGEN-NLDCT2012038669

PATIENT
  Age: 78 Year
  Sex: Male
  Weight: 82 kg

DRUGS (9)
  1. PEGFILGRASTIM [Suspect]
     Indication: MALIGNANT LYMPHOID NEOPLASM
     Dosage: 6 MG, UNK
     Route: 058
     Dates: start: 20120426
  2. RITUXIMAB [Concomitant]
     Indication: MALIGNANT LYMPHOID NEOPLASM
     Dosage: 712 MG, UNK
     Route: 042
     Dates: start: 20120425
  3. CYCLOPHOSPHAMIDE [Concomitant]
     Indication: MALIGNANT LYMPHOID NEOPLASM
     Dosage: UNK
     Route: 042
     Dates: start: 20120425
  4. DOXORUBICIN [Concomitant]
     Indication: MALIGNANT LYMPHOID NEOPLASM
     Dosage: 95 MG, UNK
     Route: 042
     Dates: start: 20120425
  5. VINCRISTINE [Concomitant]
     Indication: MALIGNANT LYMPHOID NEOPLASM
     Dosage: 20 MG, UNK
     Route: 042
     Dates: start: 20120425
  6. PREDNISONE [Concomitant]
     Indication: MALIGNANT LYMPHOID NEOPLASM
     Dosage: 100 MG, UNK
     Route: 048
     Dates: start: 20120425
  7. OMEPRAZOL [Concomitant]
     Indication: PROPHYLAXIS
     Dosage: 40 MG, UNK
     Route: 048
     Dates: start: 201203, end: 20120501
  8. ENALAPRIL [Concomitant]
     Indication: HYPERTENSION
     Dosage: 20 MG, UNK
     Route: 048
     Dates: start: 201203, end: 20120501
  9. HYDROCHLOROTHIAZIDE [Concomitant]
     Indication: HYPERTENSION
     Dosage: 12.5 MG, UNK
     Route: 048
     Dates: start: 201203, end: 20120501

REACTIONS (1)
  - Pulmonary embolism [Recovered/Resolved with Sequelae]
